FAERS Safety Report 7482980-3 (Version None)
Quarter: 2011Q2

REPORT INFORMATION
  Report Type: 
  Country: None (occurrence: None)
  Receive Date: 20110516
  Receipt Date: 20110425
  Transmission Date: 20111010
  Serious: Yes (Other)
  Sender: FDA-Public Use
  Company Number: US-UCBSA-032007

PATIENT
  Sex: Female

DRUGS (1)
  1. VIMPAT [Suspect]
     Route: 048
     Dates: start: 20110101

REACTIONS (3)
  - NIGHT SWEATS [None]
  - ATRIAL FIBRILLATION [None]
  - HEART RATE INCREASED [None]
